FAERS Safety Report 21363799 (Version 1)
Quarter: 2022Q3

REPORT INFORMATION
  Report Type: Spontaneous
  Country: US (occurrence: None)
  Receive Date: 20220921
  Receipt Date: 20220921
  Transmission Date: 20221027
  Serious: Yes (Disabling, Other)
  Sender: FDA-Public Use
  Company Number: None

PATIENT
  Age: 64 Year
  Sex: Female
  Weight: 69.3 kg

DRUGS (1)
  1. MAGNESIUM CITRATE [Suspect]
     Active Substance: MAGNESIUM CITRATE
     Indication: Bowel preparation
     Dosage: OTHER QUANTITY : 25 OUNCE(S);?
     Route: 048
     Dates: start: 20220315, end: 20220315

REACTIONS (19)
  - Recalled product administered [None]
  - Anorectal discomfort [None]
  - Pain [None]
  - Haematochezia [None]
  - Mucous stools [None]
  - Hypersensitivity [None]
  - Flatulence [None]
  - Eructation [None]
  - Thirst [None]
  - Abdominal distension [None]
  - Abdominal pain upper [None]
  - Abdominal pain upper [None]
  - Pyrexia [None]
  - Visual impairment [None]
  - Acne [None]
  - Hepatic steatosis [None]
  - Blood pressure increased [None]
  - Haematemesis [None]
  - Diarrhoea haemorrhagic [None]

NARRATIVE: CASE EVENT DATE: 20220315
